FAERS Safety Report 6632641-5 (Version None)
Quarter: 2010Q1

REPORT INFORMATION
  Report Type: 
  Country: None (occurrence: None)
  Receive Date: 20100312
  Receipt Date: 20100304
  Transmission Date: 20100710
  Serious: Yes (Hospitalization)
  Sender: FDA-Public Use
  Company Number: FR-ABBOTT-10P-056-0630265-00

PATIENT
  Age: 10 Year
  Sex: Male

DRUGS (9)
  1. CLARITHROMYCIN [Suspect]
     Indication: RESPIRATORY TRACT INFECTION
  2. OXCARBAZEPINE [Interacting]
     Indication: DRUG USE FOR UNKNOWN INDICATION
     Dosage: 540 MG IN AM AND 510 MG AT NIGHT
  3. OXCARBAZEPINE [Interacting]
  4. OXCARBAZEPINE [Interacting]
  5. OXCARBAZEPINE [Interacting]
     Dosage: DOSE HALVED
  6. OXCARBAZEPINE [Interacting]
     Dosage: INCREASED TO INITIAL DOSE OVER 72 HOURS
  7. LAMOTRIGINE [Concomitant]
     Indication: DRUG USE FOR UNKNOWN INDICATION
  8. VALPROATE SODIUM [Concomitant]
     Indication: DRUG USE FOR UNKNOWN INDICATION
     Dosage: 100 IN AM/300 MG
  9. TOPIRAMATE [Concomitant]
     Indication: DRUG USE FOR UNKNOWN INDICATION

REACTIONS (2)
  - DRUG INTERACTION [None]
  - DRUG TOXICITY [None]
